FAERS Safety Report 5776990-1 (Version None)
Quarter: 2008Q2

REPORT INFORMATION
  Report Type: 
  Country: None (occurrence: None)
  Receive Date: 20080617
  Receipt Date: 20080617
  Transmission Date: 20081010
  Serious: Yes (Other)
  Sender: FDA-Public Use
  Company Number: None

PATIENT
  Sex: Male
  Weight: 88.905 kg

DRUGS (1)
  1. ALBUTEROL [Suspect]
     Indication: ASTHMA
     Dosage: 2 PUFFS 2 TIMES A DAY PO
     Route: 048

REACTIONS (4)
  - DEVICE FAILURE [None]
  - DEVICE OCCLUSION [None]
  - ECONOMIC PROBLEM [None]
  - PHARMACEUTICAL PRODUCT COMPLAINT [None]
